FAERS Safety Report 4822069-2 (Version None)
Quarter: 2005Q4

REPORT INFORMATION
  Report Type: 
  Country: None (occurrence: None)
  Receive Date: 20051103
  Receipt Date: 20051025
  Transmission Date: 20060501
  Serious: Yes (Death)
  Sender: FDA-Public Use
  Company Number: 2005-DE-04459GD

PATIENT
  Age: 29 Year
  Sex: Female

DRUGS (3)
  1. CODEINE SUL TAB [Suspect]
     Dosage: PO
     Route: 048
  2. NORDIAZEPAM (NORDAZEPAM) [Suspect]
     Dosage: PO
     Route: 048
  3. CYAMEMAZINE (CYAMEMAZINE) [Suspect]
     Dosage: PO
     Route: 048

REACTIONS (1)
  - MULTIPLE DRUG OVERDOSE [None]
